FAERS Safety Report 5927765-1 (Version None)
Quarter: 2008Q4

REPORT INFORMATION
  Report Type: 
  Country: None (occurrence: None)
  Receive Date: 20081023
  Receipt Date: 20080415
  Transmission Date: 20090506
  Serious: Yes (Other)
  Sender: FDA-Public Use
  Company Number: US-ASTRAZENECA-2008UW07650

PATIENT
  Age: 84 Year
  Sex: Female
  Weight: 60.3 kg

DRUGS (11)
  1. MERREM I.V. [Suspect]
     Route: 042
  2. DEPAKOTE [Concomitant]
  3. KEPPRA [Concomitant]
  4. NYSTATIN [Concomitant]
  5. CLARITIN [Concomitant]
  6. RANITIDINE [Concomitant]
  7. NASACORT [Concomitant]
  8. DUONEBS [Concomitant]
  9. ARICEPT [Concomitant]
  10. IRON [Concomitant]
  11. MULTI-VITAMINS [Concomitant]

REACTIONS (2)
  - CONVULSION [None]
  - DRUG INTERACTION [None]
